FAERS Safety Report 13792632 (Version 4)
Quarter: 2018Q4

REPORT INFORMATION
  Report Type: Spontaneous
  Country: US (occurrence: US)
  Receive Date: 20170726
  Receipt Date: 20181112
  Transmission Date: 20190204
  Serious: Yes (Other)
  Sender: FDA-Public Use
  Company Number: US-IPSEN BIOPHARMACEUTICALS, INC.-2017-07678

PATIENT
  Age: 21 Year
  Sex: Male

DRUGS (2)
  1. LANREOTIDE AUTOGEL [Suspect]
     Active Substance: LANREOTIDE
     Indication: ACROMEGALY
     Dosage: 120 MG
  2. OCTREOTIDE. [Suspect]
     Active Substance: OCTREOTIDE
     Indication: ACROMEGALY

REACTIONS (11)
  - Cardiomyopathy [Unknown]
  - Dyspnoea [Unknown]
  - Left ventricular hypertrophy [Unknown]
  - Abdominal distension [Unknown]
  - Left ventricular failure [Unknown]
  - Diarrhoea [Unknown]
  - Neoplasm progression [Unknown]
  - Abdominal pain [Unknown]
  - Nausea [Unknown]
  - Vomiting [Unknown]
  - Treatment noncompliance [Unknown]
